FAERS Safety Report 25151034 (Version 1)
Quarter: 2025Q2

REPORT INFORMATION
  Report Type: Spontaneous
  Country: US (occurrence: None)
  Receive Date: 20250401
  Receipt Date: 20250401
  Transmission Date: 20250717
  Serious: Yes (unspecified)
  Sender: FDA-CTU
  Company Number: None

PATIENT
  Age: 21 Year
  Sex: Male
  Weight: 84.8 kg

DRUGS (2)
  1. ALTUVIIIO [Suspect]
     Active Substance: EFANESOCTOCOG ALFA
     Indication: Factor VIII deficiency
     Route: 040
     Dates: start: 20240903
  2. ALTEPLASE [Concomitant]
     Active Substance: ALTEPLASE
     Dates: end: 20250215

REACTIONS (2)
  - Superficial vein thrombosis [None]
  - Arteriovenous fistula [None]

NARRATIVE: CASE EVENT DATE: 20241217
